FAERS Safety Report 6913536-6 (Version None)
Quarter: 2010Q3

REPORT INFORMATION
  Report Type: 
  Country: None (occurrence: None)
  Receive Date: 20100809
  Receipt Date: 20100726
  Transmission Date: 20110219
  Serious: Yes (Hospitalization)
  Sender: FDA-Public Use
  Company Number: US-ELI_LILLY_AND_COMPANY-US201005006186

PATIENT
  Sex: Male

DRUGS (5)
  1. CYMBALTA [Suspect]
     Indication: DIABETIC NEUROPATHY
     Dosage: 30 MG, 2/D
     Dates: start: 20100215, end: 20100307
  2. CYMBALTA [Suspect]
     Dosage: 60 MG, 2/D
     Dates: start: 20100308
  3. LYRICA [Concomitant]
  4. LIDODERM [Concomitant]
     Route: 062
  5. LANTUS [Concomitant]

REACTIONS (8)
  - BALANCE DISORDER [None]
  - DIABETIC NEPHROPATHY [None]
  - DIARRHOEA [None]
  - DRUG INEFFECTIVE [None]
  - NAUSEA [None]
  - VERTIGO [None]
  - VISION BLURRED [None]
  - VOMITING [None]
